FAERS Safety Report 14037086 (Version 2)
Quarter: 2020Q1

REPORT INFORMATION
  Report Type: Spontaneous
  Country: US (occurrence: US)
  Receive Date: 20171004
  Receipt Date: 20200225
  Transmission Date: 20200409
  Serious: Yes (Death, Other)
  Sender: FDA-Public Use
  Company Number: US-ASTRAZENECA-2017SE98472

PATIENT
  Age: 849 Month
  Sex: Female

DRUGS (53)
  1. JANUVIA [Suspect]
     Active Substance: SITAGLIPTIN PHOSPHATE
     Route: 065
     Dates: start: 1997, end: 2005
  2. JANUMET [Suspect]
     Active Substance: METFORMIN HYDROCHLORIDE\SITAGLIPTIN PHOSPHATE
     Dosage: 50/1000MG ONCE DAILY
     Route: 065
     Dates: start: 20090429, end: 201003
  3. JANUMET [Suspect]
     Active Substance: METFORMIN HYDROCHLORIDE\SITAGLIPTIN PHOSPHATE
     Route: 065
     Dates: start: 20091207
  4. CRESTOR [Concomitant]
     Active Substance: ROSUVASTATIN CALCIUM
     Route: 065
  5. INDOMETHACIN. [Concomitant]
     Active Substance: INDOMETHACIN
     Route: 065
  6. SUCCINYLCHOLINE [Concomitant]
     Active Substance: SUCCINYLCHOLINE
     Route: 065
  7. ACETAMINOPHEN. [Concomitant]
     Active Substance: ACETAMINOPHEN
     Route: 065
  8. ACTOS [Concomitant]
     Active Substance: PIOGLITAZONE HYDROCHLORIDE
     Route: 065
  9. INVOKANA [Concomitant]
     Active Substance: CANAGLIFLOZIN
     Route: 065
  10. ZENPEP [Concomitant]
     Active Substance: PANCRELIPASE AMYLASE\PANCRELIPASE LIPASE\PANCRELIPASE PROTEASE
     Route: 065
  11. FENTANYL. [Concomitant]
     Active Substance: FENTANYL
     Route: 065
  12. LIDOCAINE. [Concomitant]
     Active Substance: LIDOCAINE
     Route: 065
  13. PROPOFOL. [Concomitant]
     Active Substance: PROPOFOL
     Route: 065
  14. SIMETHICONE (DIMETHICONE) [Concomitant]
     Active Substance: DIMETHICONE
     Route: 065
  15. JANUMET [Suspect]
     Active Substance: METFORMIN HYDROCHLORIDE\SITAGLIPTIN PHOSPHATE
     Route: 065
     Dates: start: 1997, end: 2005
  16. VICTOZA [Suspect]
     Active Substance: LIRAGLUTIDE
     Route: 058
  17. METFORMIN [Concomitant]
     Active Substance: METFORMIN HYDROCHLORIDE
     Route: 065
  18. BYETTA [Suspect]
     Active Substance: EXENATIDE
     Route: 065
     Dates: start: 1997, end: 2015
  19. VITAMIN B12 [Concomitant]
     Active Substance: CYANOCOBALAMIN
     Route: 065
  20. DEXTROSE. [Concomitant]
     Active Substance: DEXTROSE
     Route: 065
  21. OXYCODONE [Concomitant]
     Active Substance: OXYCODONE
     Route: 065
  22. GLYCOPYRROLATE. [Concomitant]
     Active Substance: GLYCOPYRROLATE
     Route: 065
  23. SYNTHROID [Concomitant]
     Active Substance: LEVOTHYROXINE SODIUM
     Route: 065
  24. PIOGLITAZONE. [Concomitant]
     Active Substance: PIOGLITAZONE
     Route: 065
  25. TRAMADOL. [Concomitant]
     Active Substance: TRAMADOL
     Route: 065
  26. BYETTA [Suspect]
     Active Substance: EXENATIDE
     Dosage: ONCE DAILY
     Route: 065
     Dates: start: 20060728, end: 200704
  27. HUMALOG [Concomitant]
     Active Substance: INSULIN LISPRO
     Route: 065
  28. BISACODYL. [Concomitant]
     Active Substance: BISACODYL
     Route: 065
  29. MORPHINE [Concomitant]
     Active Substance: MORPHINE
     Route: 065
  30. BENICAR [Concomitant]
     Active Substance: OLMESARTAN MEDOXOMIL
     Route: 065
  31. ATROPINE. [Concomitant]
     Active Substance: ATROPINE
     Route: 065
  32. BENZONATATE. [Concomitant]
     Active Substance: BENZONATATE
     Route: 065
  33. BYETTA [Suspect]
     Active Substance: EXENATIDE
     Dosage: 5 MCG PEN (250 MCG/ML 1.2ML)
     Route: 065
     Dates: start: 20060728
  34. VICTOZA [Suspect]
     Active Substance: LIRAGLUTIDE
     Route: 065
     Dates: start: 1997, end: 2005
  35. VICTOZA [Suspect]
     Active Substance: LIRAGLUTIDE
     Dosage: 1.8MG INJECTION ONCE DAILY
     Route: 065
     Dates: start: 20130831, end: 201511
  36. VICTOZA [Suspect]
     Active Substance: LIRAGLUTIDE
     Route: 065
     Dates: start: 20140119
  37. LOSARTAN. [Concomitant]
     Active Substance: LOSARTAN
     Route: 065
  38. HYDRALAZINE [Concomitant]
     Active Substance: HYDRALAZINE HYDROCHLORIDE
     Route: 065
  39. SEVOFLURANE. [Concomitant]
     Active Substance: SEVOFLURANE
     Route: 065
  40. CIPRO [Concomitant]
     Active Substance: CIPROFLOXACIN HYDROCHLORIDE
     Route: 065
  41. FARXIGA [Concomitant]
     Active Substance: DAPAGLIFLOZIN PROPANEDIOL
     Route: 065
  42. JANUMET [Suspect]
     Active Substance: METFORMIN HYDROCHLORIDE\SITAGLIPTIN PHOSPHATE
     Dosage: 50/1000MG
     Route: 065
     Dates: start: 20090220
  43. ZOFRAN [Concomitant]
     Active Substance: ONDANSETRON HYDROCHLORIDE
     Route: 065
  44. PROCHLORPERAZINE. [Concomitant]
     Active Substance: PROCHLORPERAZINE
     Route: 065
  45. ZOVIRAX [Concomitant]
     Active Substance: ACYCLOVIR
     Route: 065
  46. BUDESONIDE. [Concomitant]
     Active Substance: BUDESONIDE
     Route: 065
  47. IOPAMIDOL [Concomitant]
     Active Substance: IOPAMIDOL
     Route: 065
  48. BONIVA [Concomitant]
     Active Substance: IBANDRONATE SODIUM
     Route: 065
  49. ONGLYZA [Concomitant]
     Active Substance: SAXAGLIPTIN HYDROCHLORIDE
     Route: 065
  50. NYSTATIN. [Concomitant]
     Active Substance: NYSTATIN
     Route: 065
  51. SPIRONOLACTONE. [Concomitant]
     Active Substance: SPIRONOLACTONE
     Route: 065
  52. MUPIROCIN. [Concomitant]
     Active Substance: MUPIROCIN
     Route: 065
  53. PROMETHAZINE [Concomitant]
     Active Substance: PROMETHAZINE HYDROCHLORIDE
     Route: 065

REACTIONS (3)
  - Pancreatic carcinoma metastatic [Fatal]
  - Adenocarcinoma pancreas [Unknown]
  - Anxiety [Unknown]

NARRATIVE: CASE EVENT DATE: 201506
